FAERS Safety Report 6349547-1 (Version None)
Quarter: 2009Q3

REPORT INFORMATION
  Report Type: 
  Country: None (occurrence: None)
  Receive Date: 20090911
  Receipt Date: 20090902
  Transmission Date: 20100115
  Serious: Yes (Other)
  Sender: FDA-Public Use
  Company Number: US-ASTRAZENECA-2009UW16788

PATIENT
  Age: 84 Year
  Sex: Male
  Weight: 77.1 kg

DRUGS (15)
  1. ATACAND [Suspect]
     Indication: HYPERTENSION
     Dosage: 32 MG IN THE AM AND 16 MG IN THE PM
     Route: 048
     Dates: start: 20030128
  2. METOPROLOL TARTRATE [Concomitant]
     Route: 048
  3. LIPITOR [Concomitant]
  4. OMEPRAZOLE [Concomitant]
  5. SORBITOL [Concomitant]
  6. ASPIRIN [Concomitant]
  7. TRIAMTERENE AND HYDROCHLOROTHIAZIDE [Concomitant]
     Dosage: 37.5/25 MG
  8. PRILOSEC [Concomitant]
  9. NIACIN [Concomitant]
  10. MULTI-VITAMINS [Concomitant]
  11. ASCORBIC ACID [Concomitant]
  12. VITAMIN E [Concomitant]
     Dosage: 400 UNITS
  13. CALCIUM+VITAMINS [Concomitant]
  14. LECITHIN [Concomitant]
  15. BETACAROTENE [Concomitant]

REACTIONS (1)
  - AGEUSIA [None]
